FAERS Safety Report 4686094-7 (Version None)
Quarter: 2005Q2

REPORT INFORMATION
  Report Type: 
  Country: None (occurrence: None)
  Receive Date: 20050603
  Receipt Date: 20050531
  Transmission Date: 20051028
  Serious: Yes (Hospitalization)
  Sender: FDA-Public Use
  Company Number: ITWYE703630MAY05

PATIENT
  Age: 24 Year
  Sex: Male

DRUGS (2)
  1. RAPAMUNE [Suspect]
     Indication: PROPHYLAXIS AGAINST TRANSPLANT REJECTION
     Dates: start: 20050428, end: 20050527
  2. RAPAMUNE [Suspect]
     Indication: TRANSPLANT REJECTION
     Dosage: 8 MG 1X PER 1 DAY
     Dates: start: 20050528

REACTIONS (1)
  - KIDNEY TRANSPLANT REJECTION [None]
